FAERS Safety Report 8564159-7 (Version None)
Quarter: 2012Q3

REPORT INFORMATION
  Report Type: 
  Country: None (occurrence: None)
  Receive Date: 20120803
  Receipt Date: 20120724
  Transmission Date: 20120928
  Serious: Yes (Hospitalization)
  Sender: FDA-Public Use
  Company Number: CA-JNJFOC-20120713832

PATIENT
  Sex: Male
  Weight: 84 kg

DRUGS (19)
  1. VITAMIN D [Concomitant]
     Route: 065
  2. GLUCOSAMINE SULFATE [Concomitant]
     Route: 065
  3. REMICADE [Suspect]
     Indication: CROHN'S DISEASE
     Dosage: 8/52 (UNITS UNSPECIFIED)
     Route: 042
     Dates: start: 20120228
  4. ASCORBIC ACID [Concomitant]
     Route: 065
  5. COMBIGAN [Concomitant]
     Dosage: UNITS: GTTS
     Route: 065
  6. TRAMADOL HCL [Concomitant]
     Route: 065
  7. HYDROMORPHONE HCL [Concomitant]
     Dosage: TWO IN MORNING, ONCE IN THE EVENING AND TWICE AT NIGHT
     Route: 065
  8. RHOVANE [Concomitant]
     Route: 065
  9. MAGNESIUM [Concomitant]
     Route: 065
  10. FOLIC ACID [Concomitant]
     Route: 065
  11. PANTOPRAZOLE SODIUM [Concomitant]
     Route: 048
  12. METOPROLOL TARTRATE [Concomitant]
     Dosage: DOSAGE: 1.5 ONCE DAILY
     Route: 065
  13. VITAMINE E [Concomitant]
     Route: 065
  14. CALCIUM [Concomitant]
     Route: 065
  15. SCOPOLAMINE [Concomitant]
     Route: 065
  16. ALL OTHER THERAPEUTIC PRODUCTS [Concomitant]
     Dosage: 400/500MG
     Route: 065
  17. FUROSEMIDE [Concomitant]
     Route: 048
  18. XALATAN [Concomitant]
     Dosage: GTTS HS
     Route: 065
  19. DILAUDID [Concomitant]
     Route: 065

REACTIONS (6)
  - TOOTH INFECTION [None]
  - CANDIDIASIS [None]
  - ABDOMINAL PAIN [None]
  - CONSTIPATION [None]
  - PAIN [None]
  - OROPHARYNGEAL PAIN [None]
